FAERS Safety Report 5532321-3 (Version None)
Quarter: 2007Q4

REPORT INFORMATION
  Report Type: 
  Country: None (occurrence: None)
  Receive Date: 20071203
  Receipt Date: 20071121
  Transmission Date: 20080405
  Serious: No
  Sender: FDA-Public Use
  Company Number: US-ELI_LILLY_AND_COMPANY-US200711006526

PATIENT
  Age: 49 Year
  Sex: Male

DRUGS (5)
  1. CYMBALTA [Suspect]
     Dosage: 30 MG, DAILY (1/D)
     Dates: start: 20070801
  2. CYMBALTA [Suspect]
     Dosage: 60 MG, DAILY (1/D)
  3. CYMBALTA [Suspect]
     Dosage: 90 MG, DAILY (1/D)
     Dates: end: 20071001
  4. VICODIN [Concomitant]
     Dosage: 1 D/F, UNK
  5. VALIUM [Concomitant]
     Dosage: 1 D/F, UNK

REACTIONS (19)
  - ANOREXIA [None]
  - DIARRHOEA [None]
  - DIZZINESS [None]
  - DRY MOUTH [None]
  - FAECES DISCOLOURED [None]
  - FATIGUE [None]
  - HEART RATE INCREASED [None]
  - HYPERHIDROSIS [None]
  - NAUSEA [None]
  - OCULAR ICTERUS [None]
  - RESTLESSNESS [None]
  - SEXUAL DYSFUNCTION [None]
  - SOMNOLENCE [None]
  - TREMOR [None]
  - URINE COLOUR ABNORMAL [None]
  - URINE OUTPUT [None]
  - VISION BLURRED [None]
  - WEIGHT DECREASED [None]
  - YELLOW SKIN [None]
